FAERS Safety Report 10013251 (Version 1)
Quarter: 2014Q1

REPORT INFORMATION
  Report Type: Spontaneous
  Country: US (occurrence: US)
  Receive Date: 20140314
  Receipt Date: 20140314
  Transmission Date: 20141002
  Serious: No
  Sender: FDA-Public Use
  Company Number: US-BAXTER-2013BAX017848

PATIENT
  Sex: Male

DRUGS (1)
  1. CLINIMIX E? -SULFITE-FREE (AMINO ACID WITH ELECTROLYTES IN DEXTROSE WI [Suspect]
     Indication: PRODUCT USED FOR UNKNOWN INDICATION
     Route: 065

REACTIONS (4)
  - Product outer packaging issue [Unknown]
  - Accidental exposure to product [Unknown]
  - Rash [Unknown]
  - Pruritus [Unknown]
